FAERS Safety Report 13243237 (Version 1)
Quarter: 2017Q1

REPORT INFORMATION
  Report Type: Spontaneous
  Country: NO (occurrence: NO)
  Receive Date: 20170217
  Receipt Date: 20170217
  Transmission Date: 20170428
  Serious: Yes (Death)
  Sender: FDA-Public Use
  Company Number: NO-JNJFOC-20170207082

PATIENT
  Age: 90 Year
  Sex: Female

DRUGS (2)
  1. XARELTO [Suspect]
     Active Substance: RIVAROXABAN
     Indication: ATRIAL FIBRILLATION
     Route: 048
  2. SIFROL [Concomitant]
     Active Substance: PRAMIPEXOLE
     Route: 065

REACTIONS (7)
  - Heart rate increased [Fatal]
  - Faeces discoloured [Fatal]
  - Haematemesis [Fatal]
  - Respiratory rate increased [Fatal]
  - Gastrointestinal haemorrhage [Fatal]
  - Fall [Fatal]
  - Cold sweat [Fatal]

NARRATIVE: CASE EVENT DATE: 20170102
